FAERS Safety Report 24534281 (Version 1)
Quarter: 2024Q4

REPORT INFORMATION
  Report Type: Report from Study
  Country: US (occurrence: US)
  Receive Date: 20241022
  Receipt Date: 20241022
  Transmission Date: 20250115
  Serious: Yes (Other)
  Sender: JAZZ
  Company Number: US-JAZZ PHARMACEUTICALS-2024-US-004133

PATIENT
  Sex: Female

DRUGS (10)
  1. SODIUM OXYBATE [Suspect]
     Active Substance: SODIUM OXYBATE
     Indication: Narcolepsy
     Dosage: UNK
  2. SODIUM OXYBATE [Suspect]
     Active Substance: SODIUM OXYBATE
     Indication: Cataplexy
  3. SODIUM OXYBATE [Suspect]
     Active Substance: SODIUM OXYBATE
     Indication: Somnolence
  4. ALENDRONATE [Concomitant]
     Active Substance: ALENDRONATE SODIUM
     Indication: Product used for unknown indication
     Dosage: TAKE 1 TABLET BY MOUTH ON EMPTY STOMACH WEEKLY WITH GLASS OF WATER
     Route: 048
  5. ESTRADIOL [Concomitant]
     Active Substance: ESTRADIOL
     Indication: Product used for unknown indication
     Dosage: APPLY FINGER TIP FULL AT BEDTIME TO AFFECTED AREA
  6. METFORMIN HYDROCHLORIDE [Concomitant]
     Active Substance: METFORMIN HYDROCHLORIDE
     Indication: Product used for unknown indication
     Dosage: TAKE 1 TABLET BY MOUTH, BID WITH FOOD
     Route: 048
  7. PROPRANOLOL [Concomitant]
     Active Substance: PROPRANOLOL HYDROCHLORIDE
     Indication: Stress
     Dosage: TAKE 1-2 TABLETS BY MOUTH TWICE DAILY AS NEEDED FOR STRESS
     Route: 048
  8. TRIAMCINOLONE ACETONIDE [Concomitant]
     Active Substance: TRIAMCINOLONE ACETONIDE
  9. VALACYCLOVIR HYDROCHLORIDE [Concomitant]
     Active Substance: VALACYCLOVIR HYDROCHLORIDE
     Dosage: TAKE 2 TABLETS BY MOUTH AT THE FIRSTSGN OF A SORE AND REPEAT ONCE IN 12 HOURS
     Route: 048
  10. ZALEPLON [Concomitant]
     Active Substance: ZALEPLON
     Indication: Product used for unknown indication
     Dosage: TAKE 1 CAPSULE AS NEEDED IN THE MIDDLE OF THE NIGHT UPON WAKING AND INABILITY TO FALL BACK ASLEEP

REACTIONS (5)
  - Type 2 diabetes mellitus [Unknown]
  - Osteoporosis [Unknown]
  - Malnutrition [Unknown]
  - Intentional product use issue [Unknown]
  - Product administration interrupted [Unknown]
